FAERS Safety Report 8370584-X (Version None)
Quarter: 2012Q2

REPORT INFORMATION
  Report Type: 
  Country: None (occurrence: None)
  Receive Date: 20120518
  Receipt Date: 20120507
  Transmission Date: 20120825
  Serious: Yes (Hospitalization)
  Sender: FDA-Public Use
  Company Number: ES-JNJFOC-20110705273

PATIENT
  Age: 31 Year
  Sex: Female

DRUGS (4)
  1. ADALIMUMAB [Concomitant]
     Indication: CROHN'S DISEASE
     Dates: start: 20070110, end: 20100722
  2. BUDESONIDE [Concomitant]
     Indication: CROHN'S DISEASE
     Dates: start: 20101207, end: 20110126
  3. METHYLPREDNISOLONE [Concomitant]
     Indication: CROHN'S DISEASE
     Dates: start: 20110126, end: 20110411
  4. REMICADE [Suspect]
     Indication: CROHN'S DISEASE
     Route: 042
     Dates: start: 20061013

REACTIONS (2)
  - CAESAREAN SECTION [None]
  - MATERNAL EXPOSURE BEFORE PREGNANCY [None]
